FAERS Safety Report 24464590 (Version 2)
Quarter: 2025Q2

REPORT INFORMATION
  Report Type: Report from Study
  Country: DE (occurrence: DE)
  Receive Date: 20241018
  Receipt Date: 20250424
  Transmission Date: 20250717
  Serious: Yes (Hospitalization, Other)
  Sender: PFIZER
  Company Number: DE-ABBVIE-22K-062-4514495-00

PATIENT
  Age: 62 Year
  Sex: Male

DRUGS (4)
  1. METHOTREXATE SODIUM [Suspect]
     Active Substance: METHOTREXATE SODIUM
     Dosage: START DATE: BEFORE 06-JUL-2020
     Route: 065
     Dates: end: 202304
  2. METHOTREXATE SODIUM [Suspect]
     Active Substance: METHOTREXATE SODIUM
     Dosage: START DATE: BEFORE 06-JUL-2020
     Route: 065
  3. RINVOQ [Suspect]
     Active Substance: UPADACITINIB
     Indication: Rheumatoid arthritis
     Dosage: 15 MG, 1X/DAY
     Route: 048
     Dates: start: 202007, end: 202201
  4. RINVOQ [Suspect]
     Active Substance: UPADACITINIB
     Dosage: 15 MG, 1X/DAY
     Route: 048
     Dates: start: 202203, end: 202304

REACTIONS (7)
  - Foot fracture [Recovered/Resolved]
  - Pneumothorax spontaneous [Recovered/Resolved]
  - Pneumothorax [Recovered/Resolved]
  - Postoperative wound infection [Recovered/Resolved]
  - Bronchopleural fistula [Not Recovered/Not Resolved]
  - Thoracotomy [Not Recovered/Not Resolved]
  - Bronchial fistula [Unknown]

NARRATIVE: CASE EVENT DATE: 20220101
